FAERS Safety Report 8573129-4 (Version None)
Quarter: 2012Q2

REPORT INFORMATION
  Report Type: 
  Country: None (occurrence: None)
  Receive Date: 20120418
  Receipt Date: 20110217
  Transmission Date: 20120825
  Serious: Yes (Other)
  Sender: FDA-Public Use
  Company Number: PHHY2011US14781

PATIENT
  Age: 76 Year
  Sex: Female

DRUGS (3)
  1. ATENOLOL [Suspect]
     Dosage: 100 MG, BID
  2. UNKNOWN BLOOD PRESSURE DRUG [Concomitant]
  3. DIOVAN HCT [Suspect]

REACTIONS (2)
  - DRUG INEFFECTIVE [None]
  - HYPERTENSION [None]
